FAERS Safety Report 4365000-9 (Version None)
Quarter: 2004Q2

REPORT INFORMATION
  Report Type: 
  Country: None (occurrence: None)
  Receive Date: 20040521
  Receipt Date: 20040511
  Transmission Date: 20050107
  Serious: Yes (Death, Hospitalization)
  Sender: FDA-Public Use
  Company Number: 2004032156

PATIENT
  Age: 77 Year
  Sex: Female

DRUGS (4)
  1. ACCUPRIL [Suspect]
     Indication: HYPERTENSION
     Dosage: 20 MG (20 MG, 1 IN 1 D), ORAL
     Route: 048
     Dates: start: 20010601, end: 20040328
  2. AMLODIPINE [Concomitant]
  3. GLUCAMETACIN (GLUCAMETACIN) [Concomitant]
  4. DEFLAZACORT (DEFLAZACORT) [Concomitant]

REACTIONS (7)
  - BLOOD PRESSURE DECREASED [None]
  - CONVULSION [None]
  - DEEP VEIN THROMBOSIS [None]
  - DIABETES MELLITUS [None]
  - ISCHAEMIA [None]
  - PNEUMONIA [None]
  - SEPTIC SHOCK [None]
